FAERS Safety Report 14210647 (Version 1)
Quarter: 2017Q4

REPORT INFORMATION
  Report Type: Spontaneous
  Country: GB (occurrence: GB)
  Receive Date: 20171121
  Receipt Date: 20171121
  Transmission Date: 20180321
  Serious: Yes (Other)
  Sender: FDA-Public Use
  Company Number: PHHY2017GB169516

PATIENT

DRUGS (1)
  1. ENTRESTO [Suspect]
     Active Substance: SACUBITRIL\VALSARTAN
     Indication: PRODUCT USED FOR UNKNOWN INDICATION
     Dosage: UNK
     Route: 065

REACTIONS (5)
  - Weight increased [Recovered/Resolved]
  - Pulmonary arterial hypertension [Recovered/Resolved]
  - Fatigue [Recovered/Resolved]
  - Night sweats [Recovered/Resolved]
  - Muscle twitching [Recovered/Resolved]
